FAERS Safety Report 20757425 (Version 1)
Quarter: 2022Q2

REPORT INFORMATION
  Report Type: Spontaneous
  Country: US (occurrence: None)
  Receive Date: 20220427
  Receipt Date: 20220427
  Transmission Date: 20220721
  Serious: No
  Sender: FDA-Public Use
  Company Number: 2022A130966

PATIENT
  Age: 71 Year

DRUGS (1)
  1. LYNPARZA [Suspect]
     Active Substance: OLAPARIB
     Indication: Neoplasm malignant
     Route: 048
     Dates: start: 202002

REACTIONS (10)
  - Muscle spasms [Recovered/Resolved]
  - Feeling cold [Recovered/Resolved]
  - Alopecia [Not Recovered/Not Resolved]
  - Renal disorder [Unknown]
  - Blood urea increased [Unknown]
  - Blood iron decreased [Unknown]
  - Confusional state [Unknown]
  - Anaemia [Not Recovered/Not Resolved]
  - Blood creatinine increased [Unknown]
  - Red blood cell count decreased [Unknown]

NARRATIVE: CASE EVENT DATE: 20200101
